FAERS Safety Report 11126049 (Version 1)
Quarter: 2015Q2

REPORT INFORMATION
  Report Type: Spontaneous
  Country: US (occurrence: US)
  Receive Date: 20150520
  Receipt Date: 20150520
  Transmission Date: 20150821
  Serious: Yes (Other)
  Sender: FDA-Public Use
  Company Number: US-CIPLA LTD.-2015US04030

PATIENT

DRUGS (5)
  1. GEMCITABINE [Suspect]
     Active Substance: GEMCITABINE\GEMCITABINE HYDROCHLORIDE
     Indication: ADENOCARCINOMA PANCREAS
     Dosage: 18 MG/M2 FOR 2 CYCLES
     Route: 013
  2. GEMCITABINE [Suspect]
     Active Substance: GEMCITABINE\GEMCITABINE HYDROCHLORIDE
     Dosage: 96 MG/M2 FOR 2 CYCLES
     Route: 013
  3. GEMCITABINE [Suspect]
     Active Substance: GEMCITABINE\GEMCITABINE HYDROCHLORIDE
     Dosage: 115 MG/M2 FOR 1 CYCLES
     Route: 013
  4. GEMCITABINE [Suspect]
     Active Substance: GEMCITABINE\GEMCITABINE HYDROCHLORIDE
     Dosage: 72 MG/M2 FOR 2 CYCLES
     Route: 013
  5. GEMCITABINE [Suspect]
     Active Substance: GEMCITABINE\GEMCITABINE HYDROCHLORIDE
     Dosage: 36 MG/M2 FOR 2 CYCLES
     Route: 013

REACTIONS (9)
  - Duodenal ulcer [Recovered/Resolved]
  - Intestinal ischaemia [Recovered/Resolved]
  - Anaemia [Recovered/Resolved]
  - Carcinoid tumour [Unknown]
  - Impaired gastric emptying [Unknown]
  - Melaena [Recovered/Resolved]
  - Duodenitis haemorrhagic [Recovered/Resolved]
  - Gastrointestinal mucosal disorder [None]
  - Upper gastrointestinal haemorrhage [Recovered/Resolved]
